FAERS Safety Report 10035601 (Version 1)
Quarter: 2014Q1

REPORT INFORMATION
  Report Type: Spontaneous
  Country: US (occurrence: None)
  Receive Date: 20140306
  Receipt Date: 20140306
  Transmission Date: 20141002
  Serious: Yes (Other)
  Sender: FDA-Public Use
  Company Number: 163-21880-12101047

PATIENT
  Age: 74 Year
  Sex: Female
  Weight: 92.08 kg

DRUGS (1)
  1. REVLIMID (LENALIDOMIDE) (10 MILLIGRAMS, CAPSULES) [Suspect]
     Indication: PLASMA CELL MYELOMA
     Dosage: 10 MG, 14 IN 14 D, PO  08/09/2012 - UNKNOWN THERAPY DATES
     Route: 048
     Dates: start: 20120809

REACTIONS (2)
  - Renal failure [None]
  - Local swelling [None]
